FAERS Safety Report 7148271-5 (Version None)
Quarter: 2010Q4

REPORT INFORMATION
  Report Type: 
  Country: None (occurrence: None)
  Receive Date: 20101209
  Receipt Date: 20101202
  Transmission Date: 20110411
  Serious: Yes (Other)
  Sender: FDA-Public Use
  Company Number: PHHY2010US73759

PATIENT
  Sex: Female

DRUGS (2)
  1. EXTAVIA [Suspect]
     Indication: MULTIPLE SCLEROSIS
     Dosage: 0.25 MG, QOD
     Route: 058
     Dates: start: 20101020
  2. CITALOPRAM HYDROBROMIDE [Concomitant]

REACTIONS (4)
  - DRUG DOSE OMISSION [None]
  - FALL [None]
  - INJECTION SITE ERYTHEMA [None]
  - WRIST FRACTURE [None]
